FAERS Safety Report 10191282 (Version 1)
Quarter: 2014Q2

REPORT INFORMATION
  Report Type: Spontaneous
  Country: US (occurrence: US)
  Receive Date: 20140523
  Receipt Date: 20140523
  Transmission Date: 20141212
  Serious: Yes (Hospitalization)
  Sender: FDA-Public Use
  Company Number: US-BAYER-2014-075391

PATIENT
  Age: 38 Year
  Sex: Female
  Weight: 104.76 kg

DRUGS (9)
  1. YAZ [Suspect]
  2. YASMIN [Suspect]
  3. NEXIUM [Concomitant]
  4. BENICAR [Concomitant]
  5. PROZAC [Concomitant]
  6. SYNTHROID [Concomitant]
  7. GLUCOPHAGE [Concomitant]
  8. IBUPROFEN [Concomitant]
  9. DARVOCET-N [Concomitant]

REACTIONS (1)
  - Pulmonary embolism [None]
